FAERS Safety Report 8573140-3 (Version None)
Quarter: 2012Q3

REPORT INFORMATION
  Report Type: 
  Country: None (occurrence: None)
  Receive Date: 20120806
  Receipt Date: 20120730
  Transmission Date: 20120928
  Serious: Yes (Other)
  Sender: FDA-Public Use
  Company Number: IT-JNJFOC-20120714855

PATIENT
  Age: 2 Year
  Sex: Male
  Weight: 13 kg

DRUGS (2)
  1. TOPAMAX [Suspect]
     Indication: ACCIDENTAL DRUG INTAKE BY CHILD
     Route: 048
     Dates: start: 20120730, end: 20120730
  2. LAMICTAL [Suspect]
     Indication: ACCIDENTAL DRUG INTAKE BY CHILD
     Route: 048
     Dates: start: 20120730, end: 20120730

REACTIONS (5)
  - CONVULSION [None]
  - SLUGGISHNESS [None]
  - MEDICATION ERROR [None]
  - SOPOR [None]
  - ACCIDENTAL DRUG INTAKE BY CHILD [None]
